FAERS Safety Report 4870115-2 (Version None)
Quarter: 2005Q4

REPORT INFORMATION
  Report Type: 
  Country: None (occurrence: None)
  Receive Date: 20051229
  Receipt Date: 20051229
  Transmission Date: 20060501
  Serious: Yes (Hospitalization)
  Sender: FDA-Public Use
  Company Number: None

PATIENT
  Age: 77 Year
  Sex: Male
  Weight: 74 kg

DRUGS (6)
  1. OXALIPLATIN 73 MG/M2 [Suspect]
     Indication: METASTATIC NEOPLASM
     Dosage: IV
     Route: 042
     Dates: start: 20050817, end: 20051130
  2. OXALIPLATIN 73 MG/M2 [Suspect]
  3. CAPECITABINE 844MG/M2 [Suspect]
     Dosage: PO
     Route: 048
     Dates: start: 20050817, end: 20051214
  4. CREON [Concomitant]
  5. CAROURS [Concomitant]
  6. PROTONIX [Concomitant]

REACTIONS (5)
  - DEHYDRATION [None]
  - MUSCULAR WEAKNESS [None]
  - NECK PAIN [None]
  - RADICULOPATHY [None]
  - SHOULDER PAIN [None]
